FAERS Safety Report 15448757 (Version 2)
Quarter: 2019Q2

REPORT INFORMATION
  Report Type: Spontaneous
  Country: US (occurrence: US)
  Receive Date: 20180929
  Receipt Date: 20190502
  Transmission Date: 20190711
  Serious: Yes (Other)
  Sender: FDA-Public Use
  Company Number: US-SA-2017SA268123

PATIENT
  Age: 49 Year
  Sex: Female
  Weight: 81 kg

DRUGS (9)
  1. HUMIRA [Concomitant]
     Active Substance: ADALIMUMAB
     Dosage: UNK UNK, UNK
     Route: 065
     Dates: start: 2003
  2. XANAX [Concomitant]
     Active Substance: ALPRAZOLAM
     Dosage: UNK UNK, UNK
     Route: 065
     Dates: start: 2003
  3. AVAPRO [Concomitant]
     Active Substance: IRBESARTAN
     Dosage: UNK
     Dates: start: 2003
  4. CRESTOR [Concomitant]
     Active Substance: ROSUVASTATIN CALCIUM
     Route: 065
  5. DOCETAXEL. [Suspect]
     Active Substance: DOCETAXEL
     Indication: BREAST CANCER FEMALE
     Dosage: 165 MG, Q3W
     Route: 042
     Dates: start: 20150127, end: 20150127
  6. DOCETAXEL. [Suspect]
     Active Substance: DOCETAXEL
     Dosage: 165 MG, Q3W
     Route: 042
     Dates: start: 20150512, end: 20150512
  7. TRAMADOL. [Concomitant]
     Active Substance: TRAMADOL
     Dosage: UNK
     Dates: start: 2003
  8. EFFEXOR [Concomitant]
     Active Substance: VENLAFAXINE HYDROCHLORIDE
     Dosage: UNK
     Dates: start: 2003
  9. PARAPLATIN [Concomitant]
     Active Substance: CARBOPLATIN
     Route: 065

REACTIONS (2)
  - Alopecia [Recovering/Resolving]
  - Psychological trauma [Unknown]

NARRATIVE: CASE EVENT DATE: 2015
